FAERS Safety Report 17995231 (Version 1)
Quarter: 2020Q3

REPORT INFORMATION
  Report Type: Spontaneous
  Country: KR (occurrence: KR)
  Receive Date: 20200708
  Receipt Date: 20200708
  Transmission Date: 20201103
  Serious: Yes (Other)
  Sender: FDA-Public Use
  Company Number: KR-PFIZER INC-2020251057

PATIENT
  Sex: Female

DRUGS (1)
  1. ALESSE 28 [Suspect]
     Active Substance: ETHINYL ESTRADIOL\LEVONORGESTREL
     Indication: MENSTRUAL CYCLE MANAGEMENT
     Dosage: UNK
     Route: 048
     Dates: start: 2019

REACTIONS (4)
  - Inappropriate schedule of product administration [Unknown]
  - Bloody discharge [Recovered/Resolved]
  - Drug ineffective for unapproved indication [Unknown]
  - Off label use [Unknown]

NARRATIVE: CASE EVENT DATE: 2019
